FAERS Safety Report 7056613-4 (Version None)
Quarter: 2010Q4

REPORT INFORMATION
  Report Type: 
  Country: None (occurrence: None)
  Receive Date: 20101018
  Receipt Date: 20101005
  Transmission Date: 20110411
  Serious: Yes (Other)
  Sender: FDA-Public Use
  Company Number: B0678903A

PATIENT
  Age: 62 Year
  Sex: Male

DRUGS (10)
  1. ZIDOVUDINE [Suspect]
     Indication: HIV INFECTION
  2. LAMIVUDINE [Suspect]
     Indication: HIV INFECTION
  3. ABACAVIR SULFATE [Suspect]
     Indication: HIV INFECTION
  4. LOPINAVIR AND RITONAVIR [Suspect]
     Indication: HIV INFECTION
  5. TENOFOVIR DISOPROXIL FUMARATE [Suspect]
     Indication: HIV INFECTION
  6. EMTRICITABINE [Suspect]
     Indication: HIV INFECTION
  7. DARUNAVIR [Concomitant]
  8. RITONAVIR [Concomitant]
  9. SAQUINAVIR [Concomitant]
  10. RALTEGRAVIR [Concomitant]

REACTIONS (1)
  - VIROLOGIC FAILURE [None]
